FAERS Safety Report 12590647 (Version 1)
Quarter: 2016Q3

REPORT INFORMATION
  Report Type: Spontaneous
  Country: IN (occurrence: IN)
  Receive Date: 20160726
  Receipt Date: 20160726
  Transmission Date: 20161109
  Serious: No
  Sender: FDA-Public Use
  Company Number: IN-LUPIN PHARMACEUTICALS INC.-E2B_00005659

PATIENT
  Sex: Female

DRUGS (1)
  1. L-CIN [Suspect]
     Active Substance: LEVOFLOXACIN
     Indication: PRODUCT USED FOR UNKNOWN INDICATION
     Route: 042
     Dates: start: 20160605, end: 20160605

REACTIONS (1)
  - Rash [Unknown]

NARRATIVE: CASE EVENT DATE: 20160605
